FAERS Safety Report 10441998 (Version 3)
Quarter: 2014Q4

REPORT INFORMATION
  Report Type: Report from Study
  Country: JP (occurrence: JP)
  Receive Date: 20140909
  Receipt Date: 20141110
  Transmission Date: 20150528
  Serious: Yes (Hospitalization, Other)
  Sender: FDA-Public Use
  Company Number: JP-GLAXOSMITHKLINE-B1030249A

PATIENT
  Age: 56 Year
  Sex: Female
  Weight: 50 kg

DRUGS (3)
  1. PAZOPANIB [Suspect]
     Active Substance: PAZOPANIB
     Route: 048
     Dates: start: 20140219, end: 20140326
  2. UNKNOWNDRUG [Concomitant]
     Active Substance: UNSPECIFIED INGREDIENT
     Route: 065
  3. PAZOPANIB [Suspect]
     Active Substance: PAZOPANIB
     Indication: LEIOMYOSARCOMA
     Route: 048
     Dates: start: 20130730, end: 20140218

REACTIONS (2)
  - Hypertension [Recovering/Resolving]
  - Vesical fistula [Not Recovered/Not Resolved]

NARRATIVE: CASE EVENT DATE: 20130802
